FAERS Safety Report 7042136-5 (Version None)
Quarter: 2010Q4

REPORT INFORMATION
  Report Type: 
  Country: None (occurrence: None)
  Receive Date: 20101013
  Receipt Date: 20100127
  Transmission Date: 20110411
  Serious: No
  Sender: FDA-Public Use
  Company Number: US-ASTRAZENECA-2010SE03836

PATIENT
  Age: 83 Year
  Sex: Male
  Weight: 90.7 kg

DRUGS (10)
  1. SYMBICORT [Suspect]
     Indication: EMPHYSEMA
     Route: 055
  2. CRESTOR [Concomitant]
  3. DIOVAN [Concomitant]
  4. DILTIAZEM [Concomitant]
  5. VESICARE [Concomitant]
  6. OMEPRAZOLE [Concomitant]
  7. CALTRATE [Concomitant]
  8. COQ10 [Concomitant]
  9. DETROL LA [Concomitant]
  10. COUMADIN [Concomitant]

REACTIONS (1)
  - SPEECH DISORDER [None]
